FAERS Safety Report 9262954 (Version 1)
Quarter: 2013Q2

REPORT INFORMATION
  Report Type: Spontaneous
  Country: US (occurrence: None)
  Receive Date: 20130426
  Receipt Date: 20130426
  Transmission Date: 20140414
  Serious: Yes (Other)
  Sender: FDA-Public Use
  Company Number: None

PATIENT
  Age: 50 Year
  Sex: Female
  Weight: 92.99 kg

DRUGS (1)
  1. GABAPENTIN [Suspect]

REACTIONS (4)
  - Blood pressure increased [None]
  - Fatigue [None]
  - Feeling abnormal [None]
  - Vision blurred [None]
